FAERS Safety Report 4577921-2 (Version None)
Quarter: 2005Q1

REPORT INFORMATION
  Report Type: 
  Country: None (occurrence: None)
  Receive Date: 20050209
  Receipt Date: 20050126
  Transmission Date: 20050727
  Serious: Yes (Hospitalization)
  Sender: FDA-Public Use
  Company Number: 2004100001

PATIENT
  Age: 74 Year
  Sex: Female

DRUGS (5)
  1. CELEBRA [Suspect]
     Indication: OSTEOARTHRITIS
     Dosage: 200 MG (200 MG, 1 IN 1 D), ORAL
     Route: 048
     Dates: start: 20030101, end: 20040501
  2. ZOPICLONE (ZOPICLONE) [Concomitant]
  3. IRBESARTAN [Concomitant]
  4. SIMVASTATIN [Concomitant]
  5. ALBYL-ENTEROSOLUBILE (ACETYLSALICYLIC ACID, MAGNESIUM) [Concomitant]

REACTIONS (3)
  - ANAEMIA [None]
  - FATIGUE [None]
  - MELAENA [None]
